FAERS Safety Report 5794936-7 (Version None)
Quarter: 2008Q2

REPORT INFORMATION
  Report Type: 
  Country: None (occurrence: None)
  Receive Date: 20080626
  Receipt Date: 20080611
  Transmission Date: 20081010
  Serious: No
  Sender: FDA-Public Use
  Company Number: DSJ-2008-06602

PATIENT

DRUGS (8)
  1. OLMETEC (OLMESARTAN MEDOXOMIL) (TABLET) (OLMESARTAN MEDOXOMIL) [Suspect]
     Indication: HYPERTENSION
     Dosage: PER ORAL
     Route: 048
  2. NORVASC [Suspect]
  3. PARIET (RABEPRAZOLE SODIUM) (TABLET) (RABEPRAZOLE SODIUM) [Suspect]
     Indication: REFLUX OESOPHAGITIS
     Dosage: PER ORAL
     Route: 048
  4. SELBEX (TEPRENONE) (CAPSULE) (TEPRENONE) [Suspect]
     Indication: REFLUX OESOPHAGITIS
     Dosage: PER ORAL
     Route: 048
  5. CHOLEBINE MINI (COLESTILAN) (COLESTILAN) [Suspect]
     Indication: LIPIDS ABNORMAL
     Dosage: 2 SACHES, PER ORAL
     Route: 048
  6. PREDONINE (PREDNISOLONE) (TABLET) (PREDNISOLONE) [Suspect]
     Indication: RHEUMATOID ARTHRITIS
     Dosage: 5 MG, PER ORAL
     Route: 048
  7. BASEN OD (VOGLIBOSE) (VOGLIBOSE) [Concomitant]
  8. DEPAS (ETIZOLAM) (ETIZOLAM) [Concomitant]

REACTIONS (1)
  - HEPATITIS [None]
